FAERS Safety Report 7194247-1 (Version None)
Quarter: 2010Q4

REPORT INFORMATION
  Report Type: 
  Country: None (occurrence: None)
  Receive Date: 20101223
  Receipt Date: 20101213
  Transmission Date: 20110411
  Serious: Yes (Other)
  Sender: FDA-Public Use
  Company Number: US-ELI_LILLY_AND_COMPANY-US201012003119

PATIENT
  Sex: Female

DRUGS (1)
  1. GEMZAR [Suspect]
     Indication: UTERINE CANCER
     Dates: start: 20101022, end: 20101022

REACTIONS (2)
  - HOSPICE CARE [None]
  - OFF LABEL USE [None]
